FAERS Safety Report 8158114-9 (Version None)
Quarter: 2012Q1

REPORT INFORMATION
  Report Type: 
  Country: None (occurrence: None)
  Receive Date: 20120222
  Receipt Date: 20120221
  Transmission Date: 20120608
  Serious: Yes (Death)
  Sender: FDA-Public Use
  Company Number: PHHO2012PL002834

PATIENT
  Sex: Male
  Weight: 69 kg

DRUGS (11)
  1. BLINDED LBH589 [Suspect]
     Indication: MULTIPLE MYELOMA
     Dosage: DOUBLE BLINDED
     Route: 048
     Dates: start: 20111205, end: 20120209
  2. COMPARATOR BORTEZOMIB [Suspect]
     Indication: MULTIPLE MYELOMA
     Dosage: 1.78 MG, UNK
     Route: 042
     Dates: start: 20111205, end: 20120209
  3. BISOPROLOL FUMARATE [Concomitant]
  4. BLINDED PLACEBO [Suspect]
     Indication: MULTIPLE MYELOMA
     Dosage: DOUBLE BLINDED
     Route: 048
     Dates: start: 20111205, end: 20120209
  5. TRAMADOL HCL [Concomitant]
  6. BLINDED NO TREATMENT RECEIVED [Suspect]
     Indication: MULTIPLE MYELOMA
     Dosage: DOUBLE BLINDED
     Route: 048
     Dates: start: 20111205, end: 20120209
  7. CANDESARTAN CILEXETIL [Concomitant]
  8. FUROSEMIDE [Concomitant]
  9. BLINDED FORTECORTIN [Suspect]
     Indication: MULTIPLE MYELOMA
     Dosage: DOUBLE BLINDED
     Route: 048
     Dates: start: 20111205, end: 20120209
  10. VELCADE [Suspect]
     Indication: MULTIPLE MYELOMA
     Dosage: DOUBLE BLINDED
     Route: 048
     Dates: start: 20111205, end: 20120209
  11. COMPARATOR DEXAMETHASONE [Suspect]
     Indication: MULTIPLE MYELOMA
     Dosage: 20 MG, UNK
     Route: 048
     Dates: start: 20111205, end: 20120209

REACTIONS (1)
  - SUDDEN DEATH [None]
